FAERS Safety Report 10504696 (Version 2)
Quarter: 2014Q4

REPORT INFORMATION
  Report Type: Report from Study
  Country: TH (occurrence: TH)
  Receive Date: 20141008
  Receipt Date: 20141008
  Transmission Date: 20150528
  Serious: Yes (Hospitalization)
  Sender: FDA-Public Use
  Company Number: TH-ELI_LILLY_AND_COMPANY-TH201408009507

PATIENT
  Age: 89 Year
  Sex: Female

DRUGS (2)
  1. TERIPARATIDE [Suspect]
     Active Substance: TERIPARATIDE
     Indication: OSTEOPOROSIS
     Dosage: 20 UG, QD
     Route: 058
     Dates: start: 20140718
  2. TANAKAN [Interacting]
     Active Substance: GINKGO
     Indication: PRODUCT USED FOR UNKNOWN INDICATION
     Dosage: UNK, UNKNOWN
     Route: 065

REACTIONS (8)
  - Drug hypersensitivity [Recovered/Resolved]
  - Drug interaction [Unknown]
  - Tremor [Not Recovered/Not Resolved]
  - Platelet count decreased [Recovered/Resolved]
  - Rash pruritic [Recovered/Resolved]
  - Somnolence [Recovered/Resolved]
  - Muscle spasms [Recovered/Resolved]
  - Dizziness [Recovered/Resolved]

NARRATIVE: CASE EVENT DATE: 201407
